FAERS Safety Report 7619611-5 (Version None)
Quarter: 2011Q3

REPORT INFORMATION
  Report Type: 
  Country: None (occurrence: None)
  Receive Date: 20110719
  Receipt Date: 20110706
  Transmission Date: 20111222
  Serious: Yes (Hospitalization, Other)
  Sender: FDA-Public Use
  Company Number: US-BAYER-2011-020987

PATIENT
  Age: 29 Year
  Sex: Female
  Weight: 69.841 kg

DRUGS (2)
  1. YASMIN [Suspect]
     Indication: PREMENSTRUAL SYNDROME
  2. YASMIN [Suspect]
     Indication: CONTRACEPTION
     Dosage: UNK
     Dates: start: 20050101, end: 20060101

REACTIONS (4)
  - BILE DUCT STONE [None]
  - PANCREATITIS [None]
  - CHOLECYSTITIS [None]
  - IRRITABLE BOWEL SYNDROME [None]
